FAERS Safety Report 7641832-6 (Version None)
Quarter: 2011Q3

REPORT INFORMATION
  Report Type: 
  Country: None (occurrence: None)
  Receive Date: 20110728
  Receipt Date: 20110721
  Transmission Date: 20111222
  Serious: Yes (Hospitalization)
  Sender: FDA-Public Use
  Company Number: US-JNJFOC-20110105580

PATIENT
  Age: 55 Year
  Sex: Female
  Weight: 29.94 kg

DRUGS (8)
  1. FLAGYL [Concomitant]
     Dates: start: 20100413, end: 20100801
  2. DILAUDID [Concomitant]
     Indication: BREAKTHROUGH PAIN
     Dates: start: 20100413
  3. CIPROFLOXACIN HCL [Concomitant]
     Dates: start: 20100413, end: 20100801
  4. DILAUDID [Concomitant]
     Indication: PAIN
     Dates: start: 20100413
  5. DILAUDID [Concomitant]
     Dates: start: 20100413
  6. ANTIDEPRESSANTS [Concomitant]
     Indication: NEURALGIA
  7. NUCYNTA [Suspect]
     Indication: NEURALGIA
     Dosage: 4 TO 6 WEEKS
     Route: 065
     Dates: start: 20100331, end: 20100331
  8. DILAUDID [Concomitant]
     Dates: start: 20100413

REACTIONS (4)
  - WEIGHT DECREASED [None]
  - BLOOD PRESSURE INCREASED [None]
  - ABDOMINAL PAIN [None]
  - VOMITING [None]
